FAERS Safety Report 22118319 (Version 1)
Quarter: 2023Q1

REPORT INFORMATION
  Report Type: Other
  Country: ES (occurrence: None)
  Receive Date: 20230321
  Receipt Date: 20230321
  Transmission Date: 20230418
  Serious: Yes (Hospitalization)
  Sender: FDA-Public Use
  Company Number: ES-ROCHE-3202101

PATIENT
  Age: 62 Year
  Sex: Male
  Weight: 68 kg

DRUGS (14)
  1. ATEZOLIZUMAB [Suspect]
     Active Substance: ATEZOLIZUMAB
     Indication: Small cell lung cancer extensive stage
     Route: 041
     Dates: start: 20220718
  2. CARBOPLATIN [Suspect]
     Active Substance: CARBOPLATIN
     Indication: Small cell lung cancer extensive stage
     Route: 065
     Dates: start: 20220718
  3. ETOPOSIDE [Suspect]
     Active Substance: ETOPOSIDE
     Indication: Small cell lung cancer extensive stage
     Dosage: 179 179
     Route: 042
     Dates: start: 20220718
  4. ETOPOSIDE [Suspect]
     Active Substance: ETOPOSIDE
     Route: 048
     Dates: start: 20220719
  5. NETUPITANT [Concomitant]
     Active Substance: NETUPITANT
     Dosage: SUBSEQUENT ON 23/SEP/2022, 02/SEP/2022
     Dates: start: 20220809, end: 20220809
  6. DEXAMETHASONE [Concomitant]
     Active Substance: DEXAMETHASONE
     Dosage: SUBSEQUENT ON 23/SEP/2022, 02/SEP/2022
     Dates: start: 20220809, end: 20220809
  7. PALONOSETRON [Concomitant]
     Active Substance: PALONOSETRON
     Dosage: SUBSEQUENT ON 23/SEP/2022, 02/SEP/2022
     Dates: start: 20220809, end: 20220809
  8. ACTOCORTIN [Concomitant]
     Dates: start: 20220809, end: 20220809
  9. POLARAMINE [Concomitant]
     Active Substance: DEXCHLORPHENIRAMINE MALEATE
     Dates: start: 20220809, end: 20220809
  10. MYCOSTATIN [Concomitant]
     Active Substance: NYSTATIN
     Dates: start: 20220724
  11. ALBUTEROL [Concomitant]
     Active Substance: ALBUTEROL
     Dates: start: 20220616
  12. IPRATROPIUM BROMIDE [Concomitant]
     Active Substance: IPRATROPIUM BROMIDE
     Dates: start: 20220616
  13. LORAZEPAM [Concomitant]
     Active Substance: LORAZEPAM
     Dates: start: 20220624
  14. DEXAMETHASONE [Concomitant]
     Active Substance: DEXAMETHASONE
     Dosage: SUBSEQUENT DOSE ON 03/SEP/2022 TO 05/SEP/2022 AND 24/SEP/2022 TO 25/SEP/2022
     Dates: start: 20220810, end: 20220812

REACTIONS (8)
  - Mucosal inflammation [Recovered/Resolved]
  - Mucosal inflammation [Recovered/Resolved]
  - Chest discomfort [Recovered/Resolved]
  - Pyrexia [Recovered/Resolved]
  - Asthenia [Recovering/Resolving]
  - Cough [Recovered/Resolved]
  - Dyspnoea [Recovered/Resolved]
  - Respiratory tract infection [Recovered/Resolved]

NARRATIVE: CASE EVENT DATE: 20220724
